FAERS Safety Report 22157293 (Version 1)
Quarter: 2023Q1

REPORT INFORMATION
  Report Type: Spontaneous
  Country: CN (occurrence: CN)
  Receive Date: 20230330
  Receipt Date: 20230330
  Transmission Date: 20230417
  Serious: Yes (Other)
  Sender: FDA-Public Use
  Company Number: CN-BRISTOL-MYERS SQUIBB COMPANY-2023-045116

PATIENT
  Age: 50 Year
  Sex: Female
  Weight: 65 kg

DRUGS (4)
  1. OPDIVO [Suspect]
     Active Substance: NIVOLUMAB
     Indication: Gastric cancer
     Dosage: DOSE : 240MG;     FREQ : ^D1^ , +NS100ML IVDRIP
     Route: 041
     Dates: start: 20230306, end: 20230306
  2. FLUOROURACIL [Suspect]
     Active Substance: FLUOROURACIL
     Indication: Gastric cancer
     Dosage: +NS240ML IVPUMP D1
     Route: 042
     Dates: start: 20230306, end: 20230306
  3. PACLITAXEL [Suspect]
     Active Substance: PACLITAXEL
     Indication: Gastric cancer
     Dosage: +NS100ML IVDRIP D1
     Route: 041
     Dates: start: 20230306, end: 20230306
  4. SODIUM CHLORIDE [Concomitant]
     Active Substance: SODIUM CHLORIDE
     Indication: Gastric cancer
     Dosage: NIVOLUMAB 240MG+NS100ML IVDRIP D1?NAB-PACLITAXEL 256MG+NS100ML IVDRIP D1,? FLUOROURACIL 4.25G+NS240M
     Route: 041
     Dates: start: 20230306, end: 20230306

REACTIONS (3)
  - Leukopenia [Recovered/Resolved]
  - Neutropenia [Recovered/Resolved]
  - Thrombocytopenia [Recovered/Resolved]

NARRATIVE: CASE EVENT DATE: 20230320
